FAERS Safety Report 14361157 (Version 2)
Quarter: 2018Q1

REPORT INFORMATION
  Report Type: Report from Study
  Country: JP (occurrence: JP)
  Receive Date: 20180107
  Receipt Date: 20180205
  Transmission Date: 20180509
  Serious: Yes (Hospitalization)
  Sender: FDA-Public Use
  Company Number: JP-CONCORDIA PHARMACEUTICALS INC.-GSH201801-000048

PATIENT
  Age: 35 Year
  Sex: Female

DRUGS (10)
  1. FLUITRAN [Concomitant]
     Active Substance: TRICHLORMETHIAZIDE
  2. PRALIA [Concomitant]
     Active Substance: DENOSUMAB
  3. RITUXAN [Suspect]
     Active Substance: RITUXIMAB
     Dates: end: 20160907
  4. TACROLIMUS. [Concomitant]
     Active Substance: TACROLIMUS
  5. TAKECAB [Concomitant]
     Active Substance: VONOPRAZAN FUMURATE
  6. EDIROL [Concomitant]
     Active Substance: ELDECALCITOL
  7. PLAQUENIL [Suspect]
     Active Substance: HYDROXYCHLOROQUINE SULFATE
     Indication: SYSTEMIC LUPUS ERYTHEMATOSUS
     Route: 048
     Dates: start: 20160809
  8. PREDNISONE. [Concomitant]
     Active Substance: PREDNISONE
  9. FUROSEMIDE. [Concomitant]
     Active Substance: FUROSEMIDE
  10. PREDONINE [Concomitant]
     Active Substance: PREDNISOLONE

REACTIONS (1)
  - Serum sickness [Recovered/Resolved]

NARRATIVE: CASE EVENT DATE: 20160915
